FAERS Safety Report 20039513 (Version 2)
Quarter: 2021Q4

REPORT INFORMATION
  Report Type: Report from Study
  Country: US (occurrence: US)
  Receive Date: 20211106
  Receipt Date: 20211112
  Transmission Date: 20220304
  Serious: Yes (Hospitalization)
  Sender: FDA-Public Use
  Company Number: US-ABBVIE-21K-163-4148777-00

PATIENT
  Age: 82 Year
  Sex: Male
  Weight: 81.720 kg

DRUGS (3)
  1. DUOPA [Suspect]
     Active Substance: CARBIDOPA\LEVODOPA
     Indication: Product used for unknown indication
     Route: 050
     Dates: start: 20200901
  2. DUOPA [Suspect]
     Active Substance: CARBIDOPA\LEVODOPA
  3. MELATONIN [Concomitant]
     Active Substance: MELATONIN
     Indication: Product used for unknown indication

REACTIONS (14)
  - Cerebrovascular accident [Unknown]
  - Hypotension [Unknown]
  - Fatigue [Unknown]
  - Decreased appetite [Unknown]
  - Sleep disorder [Unknown]
  - Somnolence [Unknown]
  - Hypertension [Unknown]
  - Device leakage [Not Recovered/Not Resolved]
  - Stoma site discharge [Unknown]
  - Wheelchair user [Unknown]
  - Appetite disorder [Unknown]
  - Somnolence [Unknown]
  - Hypertension [Unknown]
  - Device issue [Unknown]

NARRATIVE: CASE EVENT DATE: 20211108
